FAERS Safety Report 11475336 (Version 4)
Quarter: 2015Q4

REPORT INFORMATION
  Report Type: Report from Study
  Country: US (occurrence: US)
  Receive Date: 20150909
  Receipt Date: 20151005
  Transmission Date: 20160304
  Serious: Yes (Hospitalization, Other)
  Sender: FDA-Public Use
  Company Number: DE-PFIZER INC-2015295302

PATIENT
  Age: 9 Year
  Sex: Female

DRUGS (2)
  1. SOLU-MEDROL [Suspect]
     Active Substance: METHYLPREDNISOLONE SODIUM SUCCINATE
     Indication: HISTIOCYTOSIS HAEMATOPHAGIC
     Dosage: 93 (UNK UNITS)
     Route: 042
     Dates: start: 20150824, end: 20150829
  2. BLINDED THERAPY [Suspect]
     Active Substance: INVESTIGATIONAL PRODUCT
     Indication: KAWASAKI^S DISEASE
     Dosage: UNK
     Route: 058
     Dates: start: 20150814, end: 20150820

REACTIONS (3)
  - Histiocytosis haematophagic [Unknown]
  - Juvenile idiopathic arthritis [Unknown]
  - Delirium [Unknown]

NARRATIVE: CASE EVENT DATE: 20150824
